FAERS Safety Report 5388167-2 (Version None)
Quarter: 2007Q3

REPORT INFORMATION
  Report Type: 
  Country: None (occurrence: None)
  Receive Date: 20070716
  Receipt Date: 20070104
  Transmission Date: 20080115
  Serious: No
  Sender: FDA-Public Use
  Company Number: A0633734A

PATIENT
  Age: 31 Year
  Sex: Female

DRUGS (1)
  1. NICORETTE (MINT) [Suspect]
     Route: 002
     Dates: start: 20070101, end: 20070101

REACTIONS (1)
  - TOOTH FRACTURE [None]
